FAERS Safety Report 8814508 (Version 4)
Quarter: 2012Q4

REPORT INFORMATION
  Report Type: 
  Country: AU (occurrence: AU)
  Receive Date: 20120928
  Receipt Date: 20121120
  Transmission Date: 20130627
  Serious: Yes (Life-Threatening, Hospitalization, Disabling, Other)
  Sender: FDA-Public Use
  Company Number: PHHY2012AU083204

PATIENT
  Age: 52 Year
  Sex: Female
  Weight: 82 kg

DRUGS (1)
  1. CLOZARIL [Suspect]
     Dosage: 75 mg, UNK
     Route: 048
     Dates: start: 19950912

REACTIONS (5)
  - Feeling abnormal [Unknown]
  - Colorectal cancer [Unknown]
  - Respiratory disorder [Unknown]
  - Neutrophil count increased [Unknown]
  - White blood cell count increased [Unknown]
